FAERS Safety Report 8428489-1 (Version None)
Quarter: 2012Q2

REPORT INFORMATION
  Report Type: 
  Country: None (occurrence: None)
  Receive Date: 20120612
  Receipt Date: 20120606
  Transmission Date: 20120825
  Serious: No
  Sender: FDA-Public Use
  Company Number: US-PFIZER INC-2012136469

PATIENT

DRUGS (2)
  1. CLONAZEPAM [Suspect]
     Dosage: UNK
  2. PRISTIQ [Suspect]
     Dosage: 50 MG, UNK

REACTIONS (2)
  - BLOOD PRESSURE DIASTOLIC INCREASED [None]
  - BLOOD PRESSURE INCREASED [None]
